FAERS Safety Report 15554156 (Version 1)
Quarter: 2018Q4

REPORT INFORMATION
  Report Type: Spontaneous
  Country: US (occurrence: US)
  Receive Date: 20181025
  Receipt Date: 20181025
  Transmission Date: 20190205
  Serious: Yes (Hospitalization, Other)
  Sender: FDA-Public Use
  Company Number: None

PATIENT
  Age: 70 Year
  Sex: Female
  Weight: 67.5 kg

DRUGS (1)
  1. GADOLINIUM CONTRAST AGENTS [Suspect]
     Active Substance: GADOLINIUM
     Indication: NUCLEAR MAGNETIC RESONANCE IMAGING
     Route: 042
     Dates: start: 20110418, end: 20180613

REACTIONS (26)
  - Zinc deficiency [None]
  - Blood copper abnormal [None]
  - Arthralgia [None]
  - Documented hypersensitivity to administered product [None]
  - Cerebral disorder [None]
  - Hernia [None]
  - Immune system disorder [None]
  - Paraesthesia [None]
  - Dry eye [None]
  - C-reactive protein abnormal [None]
  - Immunodeficiency [None]
  - Dry mouth [None]
  - Muscle spasms [None]
  - Ligament pain [None]
  - Brain neoplasm [None]
  - Bone pain [None]
  - Gastric polyps [None]
  - Contrast media toxicity [None]
  - Conjunctivitis [None]
  - Tinnitus [None]
  - Poisoning [None]
  - Skin burning sensation [None]
  - Hyperparathyroidism [None]
  - Renal cyst [None]
  - Sleep apnoea syndrome [None]
  - Liver disorder [None]

NARRATIVE: CASE EVENT DATE: 20180613
